FAERS Safety Report 5831500-5 (Version None)
Quarter: 2008Q3

REPORT INFORMATION
  Report Type: 
  Country: None (occurrence: None)
  Receive Date: 20080730
  Receipt Date: 20080722
  Transmission Date: 20090109
  Serious: Yes (Death)
  Sender: FDA-Public Use
  Company Number: 163-21880-08061808

PATIENT
  Age: 62 Year
  Sex: Male

DRUGS (1)
  1. REVLIMID [Suspect]
     Indication: MULTIPLE MYELOMA
     Dosage: 25 MG, DAILY, DAYS 1-21 Q 28 DAYS, ORAL
     Route: 048
     Dates: start: 20080314

REACTIONS (3)
  - ATRIOVENTRICULAR BLOCK COMPLETE [None]
  - DISEASE PROGRESSION [None]
  - MULTIPLE MYELOMA [None]
